FAERS Safety Report 21729298 (Version 1)
Quarter: 2022Q4

REPORT INFORMATION
  Report Type: Spontaneous
  Country: CO (occurrence: CO)
  Receive Date: 20221214
  Receipt Date: 20221214
  Transmission Date: 20230113
  Serious: Yes (Hospitalization, Other)
  Sender: FDA-Public Use
  Company Number: CO-VERTEX PHARMACEUTICALS-2022-018643

PATIENT
  Age: 13 Year
  Sex: Male
  Weight: 24 kg

DRUGS (5)
  1. TRIKAFTA [Suspect]
     Active Substance: ELEXACAFTOR\IVACAFTOR\TEZACAFTOR
     Indication: Cystic fibrosis
     Dosage: 24 HOURS
     Route: 048
     Dates: start: 20220325
  2. ALBUTEROL [Concomitant]
     Active Substance: ALBUTEROL
     Indication: Cystic fibrosis
     Dosage: 10 MG/ ML, 24 HOURS
  3. TOBRAMYCIN [Concomitant]
     Active Substance: TOBRAMYCIN
     Indication: Cystic fibrosis
     Dosage: 28 MG, 24 HOURS
  4. DORNASE ALFA [Concomitant]
     Active Substance: DORNASE ALFA
     Indication: Cystic fibrosis
     Dosage: 2.5/2 MG/ML, 24 HOURS
  5. SALMETEROL [Concomitant]
     Active Substance: SALMETEROL
     Indication: Cystic fibrosis
     Dosage: 25/ 125 MCG, 24 HOURS

REACTIONS (3)
  - Dyspnoea [Recovering/Resolving]
  - Chest discomfort [Recovering/Resolving]
  - Headache [Recovering/Resolving]

NARRATIVE: CASE EVENT DATE: 20221203
